FAERS Safety Report 24013775 (Version 1)
Quarter: 2024Q2

REPORT INFORMATION
  Report Type: Spontaneous
  Country: PL (occurrence: PL)
  Receive Date: 20240626
  Receipt Date: 20240626
  Transmission Date: 20240716
  Serious: Yes (Other)
  Sender: FDA-Public Use
  Company Number: None

PATIENT
  Age: 69 Year
  Sex: Male
  Weight: 80 kg

DRUGS (1)
  1. GLYCOPYRRONIUM\INDACATEROL [Suspect]
     Active Substance: GLYCOPYRRONIUM\INDACATEROL
     Indication: Chronic obstructive pulmonary disease
     Dosage: UNK, (DRUG USED IN THE MORNING)
     Route: 055
     Dates: start: 20191001, end: 20191114

REACTIONS (4)
  - Urethral meatus stenosis [Unknown]
  - Myalgia [Unknown]
  - Dry throat [Unknown]
  - Dysuria [Unknown]
